FAERS Safety Report 8024149-X (Version None)
Quarter: 2012Q1

REPORT INFORMATION
  Report Type: 
  Country: None (occurrence: None)
  Receive Date: 20120103
  Receipt Date: 20111221
  Transmission Date: 20120608
  Serious: Yes (Other)
  Sender: FDA-Public Use
  Company Number: 2011MA017941

PATIENT
  Age: 91 Year
  Sex: Male
  Weight: 73 kg

DRUGS (9)
  1. ISOSORBIDE DINITRATE [Concomitant]
  2. CLOPIDOGREL [Concomitant]
  3. METOPROLOL SUCCINATE [Concomitant]
  4. GLIPIZIDE [Concomitant]
  5. DANAZOL [Suspect]
     Indication: IDIOPATHIC THROMBOCYTOPENIC PURPURA
     Dosage: 400 MG;QD;UNK
  6. LEVOTHYROXINE SODIUM [Concomitant]
  7. LOVASTATIN [Suspect]
     Dosage: 40 MG;QD;UNK
  8. LISINOPRIL [Concomitant]
  9. ASPIRIN [Concomitant]

REACTIONS (4)
  - RENAL IMPAIRMENT [None]
  - RHABDOMYOLYSIS [None]
  - WHITE BLOOD CELL COUNT INCREASED [None]
  - DRUG INTERACTION [None]
